FAERS Safety Report 23706467 (Version 2)
Quarter: 2024Q4

REPORT INFORMATION
  Report Type: Spontaneous
  Country: IS (occurrence: IS)
  Receive Date: 20240404
  Receipt Date: 20241014
  Transmission Date: 20250115
  Serious: Yes (Death, Other)
  Sender: CELLTRION
  Company Number: IS-CELLTRION INC.-2021IS019485

PATIENT

DRUGS (1)
  1. RITUXIMAB [Suspect]
     Active Substance: RITUXIMAB
     Indication: Sjogren^s syndrome
     Dosage: 2000 MG (ADDITIONAL INFORMATION ON DRUG (CODED): OFF LABEL USE)
     Route: 065

REACTIONS (2)
  - Colitis ulcerative [Fatal]
  - Intentional product use issue [Unknown]
